FAERS Safety Report 10084453 (Version 4)
Quarter: 2014Q2

REPORT INFORMATION
  Report Type: Spontaneous
  Country: JP (occurrence: JP)
  Receive Date: 20140417
  Receipt Date: 20140530
  Transmission Date: 20141212
  Serious: Yes (Death, Hospitalization)
  Sender: FDA-Public Use
  Company Number: JP-EISAI INC-E2090-03218-SPO-JP

PATIENT
  Age: 65 Year
  Sex: Female

DRUGS (8)
  1. TRERIEF [Suspect]
     Indication: PARKINSON^S DISEASE
     Route: 048
     Dates: start: 20130827, end: 20131008
  2. TRERIEF [Suspect]
     Route: 048
     Dates: start: 20140318, end: 20140404
  3. MADOPAR [Concomitant]
     Indication: PARKINSON^S DISEASE
     Dosage: UNKNOWN
     Route: 048
  4. SYMMETREL [Concomitant]
     Indication: PARKINSON^S DISEASE
     Dosage: 300 MG/DAY
     Route: 048
  5. COMTAN [Concomitant]
     Indication: PARKINSON^S DISEASE
     Dosage: 600 MG/DAY
     Route: 048
  6. MAGMITT [Concomitant]
     Indication: CONSTIPATION
     Dosage: 1500 MG/DAY
     Route: 048
  7. EVISTA [Concomitant]
     Indication: OSTEOPOROSIS
     Dosage: 60 MG/DAY
     Route: 048
  8. REQUIP CR [Concomitant]
     Indication: PARKINSON^S DISEASE
     Dosage: 12 MG/DAY
     Route: 048
     Dates: start: 201209

REACTIONS (1)
  - Interstitial lung disease [Fatal]
